FAERS Safety Report 6123363-8 (Version None)
Quarter: 2009Q1

REPORT INFORMATION
  Report Type: 
  Country: None (occurrence: None)
  Receive Date: 20090318
  Receipt Date: 20090303
  Transmission Date: 20090719
  Serious: Yes (Other)
  Sender: FDA-Public Use
  Company Number: DE-GENENTECH-279018

PATIENT
  Age: 79 Year
  Sex: Female

DRUGS (7)
  1. LUCENTIS [Suspect]
     Indication: DETACHMENT OF RETINAL PIGMENT EPITHELIUM
     Dosage: UNK
     Route: 031
     Dates: start: 20070616
  2. LUCENTIS [Suspect]
     Indication: MACULAR DEGENERATION
     Dosage: UNK
     Route: 031
     Dates: start: 20070713
  3. LUCENTIS [Suspect]
     Dosage: UNK
     Route: 031
     Dates: start: 20070820
  4. LUCENTIS [Suspect]
     Dosage: UNK
     Route: 031
     Dates: start: 20080102
  5. LUCENTIS [Suspect]
     Dosage: UNK
     Route: 031
     Dates: start: 20080409
  6. LUCENTIS [Suspect]
     Dosage: UNK
     Route: 031
     Dates: start: 20080618
  7. LUCENTIS [Suspect]
     Dosage: UNK
     Route: 031
     Dates: start: 20081008

REACTIONS (2)
  - RETINAL SCAR [None]
  - VISUAL ACUITY REDUCED [None]
